FAERS Safety Report 9116309 (Version 9)
Quarter: 2018Q4

REPORT INFORMATION
  Report Type: Report from Study
  Country: US (occurrence: US)
  Receive Date: 20130225
  Receipt Date: 20181218
  Transmission Date: 20190205
  Serious: Yes (Hospitalization)
  Sender: FDA-Public Use
  Company Number: US-ACTELION-A-US2013-79500

PATIENT
  Age: 69 Year
  Sex: Female
  Weight: 92.97 kg

DRUGS (6)
  1. SILDENAFIL. [Concomitant]
     Active Substance: SILDENAFIL
  2. DILTIAZEM. [Concomitant]
     Active Substance: DILTIAZEM
  3. COUMADIN [Suspect]
     Active Substance: WARFARIN SODIUM
     Indication: PRODUCT USED FOR UNKNOWN INDICATION
     Route: 065
  4. LETAIRIS [Concomitant]
     Active Substance: AMBRISENTAN
     Indication: PRODUCT USED FOR UNKNOWN INDICATION
     Dosage: UNK
     Dates: end: 20160927
  5. TRACLEER [Suspect]
     Active Substance: BOSENTAN
     Indication: PULMONARY ARTERIAL HYPERTENSION
     Dosage: 125 MG, BID
     Route: 048
     Dates: start: 20070911
  6. TRACLEER [Suspect]
     Active Substance: BOSENTAN
     Dosage: UNK
     Route: 048

REACTIONS (13)
  - Fluid retention [Unknown]
  - Dyspnoea exertional [Unknown]
  - Cystitis [Recovered/Resolved]
  - Condition aggravated [Unknown]
  - Blood creatinine increased [Recovered/Resolved]
  - Headache [Unknown]
  - Epistaxis [Unknown]
  - Dyspnoea [Unknown]
  - Nasal congestion [Unknown]
  - Respiratory distress [Unknown]
  - Chest pain [Unknown]
  - Urinary tract infection [Unknown]
  - Aspartate aminotransferase increased [Recovered/Resolved]

NARRATIVE: CASE EVENT DATE: 20140322
